FAERS Safety Report 17807881 (Version 2)
Quarter: 2020Q3

REPORT INFORMATION
  Report Type: Spontaneous
  Country: CN (occurrence: CN)
  Receive Date: 20200520
  Receipt Date: 20200709
  Transmission Date: 20201102
  Serious: No
  Sender: FDA-Public Use
  Company Number: CN-PFIZER INC-2020197119

PATIENT
  Age: 80 Year
  Sex: Female

DRUGS (1)
  1. NORVASC [Suspect]
     Active Substance: AMLODIPINE BESYLATE
     Dosage: UNK
     Route: 048

REACTIONS (1)
  - No adverse event [Recovering/Resolving]
